FAERS Safety Report 7800855-4 (Version None)
Quarter: 2011Q4

REPORT INFORMATION
  Report Type: 
  Country: None (occurrence: None)
  Receive Date: 20111006
  Receipt Date: 20110930
  Transmission Date: 20120403
  Serious: Yes (Other)
  Sender: FDA-Public Use
  Company Number: US-AMGEN-USASP2011050741

PATIENT
  Age: 33 Year
  Sex: Male

DRUGS (2)
  1. ENBREL [Suspect]
     Indication: PSORIATIC ARTHROPATHY
     Dosage: 50 MG, QWK
     Dates: start: 20110101
  2. AZULFIDINE [Concomitant]
     Dosage: 1 MG, QD
     Dates: start: 20101001

REACTIONS (7)
  - BLOOD POTASSIUM DECREASED [None]
  - ARTHRALGIA [None]
  - BACK PAIN [None]
  - PYREXIA [None]
  - VOMITING [None]
  - PLATELET COUNT DECREASED [None]
  - NAUSEA [None]
